FAERS Safety Report 9168035 (Version 3)
Quarter: 2013Q3

REPORT INFORMATION
  Report Type: Spontaneous
  Country: GR (occurrence: GR)
  Receive Date: 20130318
  Receipt Date: 20130919
  Transmission Date: 20140515
  Serious: Yes (Other)
  Sender: FDA-Public Use
  Company Number: GR-JNJFOC-20130210599

PATIENT
  Age: 15 Year
  Sex: Female

DRUGS (5)
  1. REMICADE [Suspect]
     Indication: CROHN^S DISEASE
     Route: 042
     Dates: start: 20111013
  2. REMICADE [Suspect]
     Indication: CROHN^S DISEASE
     Dosage: 9TH INFUSION
     Route: 042
     Dates: start: 201302
  3. REMICADE [Suspect]
     Indication: CROHN^S DISEASE
     Route: 042
     Dates: start: 201209
  4. ZINADOL [Suspect]
     Indication: NASOPHARYNGITIS
     Route: 065
  5. AZATHIOPRINE [Concomitant]
     Route: 065

REACTIONS (8)
  - Suicidal ideation [Unknown]
  - Major depression [Unknown]
  - Infusion related reaction [Recovered/Resolved]
  - Colour blindness [Recovered/Resolved]
  - Panic attack [Unknown]
  - Dizziness [Recovered/Resolved]
  - Nasopharyngitis [Unknown]
  - Haematochezia [Unknown]
